FAERS Safety Report 14390881 (Version 1)
Quarter: 2018Q1

REPORT INFORMATION
  Report Type: Spontaneous
  Country: MX (occurrence: MX)
  Receive Date: 20180116
  Receipt Date: 20180116
  Transmission Date: 20180509
  Serious: No
  Sender: FDA-Public Use
  Company Number: MX-LUPIN PHARMACEUTICALS INC.-2017-04605

PATIENT
  Age: 26 Year
  Sex: Female
  Weight: 50 kg

DRUGS (4)
  1. METEOSPASMYL [Concomitant]
     Active Substance: ALVERINE CITRATE\DIMETHICONE
     Indication: COLITIS
     Dosage: 1 DF, BEFORE EACH MEAL
     Route: 048
     Dates: start: 20170724, end: 20170807
  2. PANTOPRAZOLE [Concomitant]
     Active Substance: PANTOPRAZOLE
     Indication: GASTRITIS
     Dosage: 1 DF, QD, WITH AN EMPTY STOMACH
     Route: 048
     Dates: start: 20170724, end: 20170807
  3. CEFDINIR CAPSULES USP, 300 MG [Suspect]
     Active Substance: CEFDINIR
     Dosage: 300 MG, BID (EVERY 12 HOURS/5 DAYS)
     Route: 048
     Dates: start: 20170801, end: 20170801
  4. CEFDINIR CAPSULES USP, 300 MG [Suspect]
     Active Substance: CEFDINIR
     Indication: STAPHYLOCOCCAL INFECTION
     Dosage: 300 MG, BID (EVERY 12 HOURS / 5 DAYS)
     Route: 048
     Dates: start: 20170728, end: 20170731

REACTIONS (2)
  - Pruritus [Not Recovered/Not Resolved]
  - Rash [Not Recovered/Not Resolved]

NARRATIVE: CASE EVENT DATE: 20170729
